FAERS Safety Report 7228243-2 (Version None)
Quarter: 2011Q1

REPORT INFORMATION
  Report Type: 
  Country: None (occurrence: None)
  Receive Date: 20110114
  Receipt Date: 20110111
  Transmission Date: 20110831
  Serious: Yes (Other)
  Sender: FDA-Public Use
  Company Number: JP-PFIZER INC-2011007247

PATIENT
  Age: 64 Year
  Sex: Female

DRUGS (2)
  1. AMARYL [Concomitant]
     Indication: DIABETES MELLITUS
     Route: 048
  2. LYRICA [Suspect]
     Indication: NEURALGIA
     Dosage: 75 MG, 2X/DAY
     Route: 048
     Dates: start: 20101227

REACTIONS (1)
  - CYSTITIS [None]
